FAERS Safety Report 5930295-4 (Version None)
Quarter: 2008Q4

REPORT INFORMATION
  Report Type: 
  Country: None (occurrence: None)
  Receive Date: 20081024
  Receipt Date: 20081017
  Transmission Date: 20090506
  Serious: Yes (Disabling, Other)
  Sender: FDA-Public Use
  Company Number: US-ALLERGAN-0813209US

PATIENT
  Sex: Male

DRUGS (2)
  1. LUMIGAN [Suspect]
     Indication: GLAUCOMA
     Route: 047
  2. CRESTOR [Concomitant]
     Indication: BLOOD CHOLESTEROL INCREASED

REACTIONS (4)
  - BLINDNESS [None]
  - CORNEAL ABRASION [None]
  - FUNGAL INFECTION [None]
  - GROWTH OF EYELASHES [None]
